FAERS Safety Report 9155144 (Version 3)
Quarter: 2013Q1

REPORT INFORMATION
  Report Type: Spontaneous
  Country: ZA (occurrence: None)
  Receive Date: 20130205
  Receipt Date: 20130305
  Transmission Date: 20140127
  Serious: Yes (Hospitalization)
  Sender: FDA-Public Use
  Company Number: 220207

PATIENT
  Age: 42 Year
  Sex: Female
  Weight: 63.8 kg

DRUGS (21)
  1. INNOHEP (TINZAPARIN SODIUM) (20000 IU/ML, SOLUTION FOR INJECTION) [Suspect]
     Indication: PULMONARY EMBOLISM
     Route: 058
     Dates: start: 20130111, end: 20130115
  2. WARFARIN (WARFARIN SODIUM) (TABLET) [Suspect]
     Indication: PULMONARY EMBOLISM
     Route: 048
     Dates: start: 20130111, end: 20130111
  3. WARFARIN (WARFARIN SODIUM) (TABLET) [Suspect]
     Indication: DEEP VEIN THROMBOSIS
     Route: 048
     Dates: start: 20130111, end: 20130111
  4. MORPHINE [Concomitant]
  5. BUSCOPAN (HYOSCINE BUTYLBROMIDE) (TABLET) [Concomitant]
  6. PARAFFIN [Concomitant]
  7. NEXIUM (ESOMEPRAZOLE SODIUM) [Concomitant]
  8. SABAX ENEMA (SODIUM CHLORIDE) [Concomitant]
  9. BETANOID (BETAMETHASONE SODIUM PHOSPHATE) [Concomitant]
  10. PHENERGAN (PROMETHAZINE) [Concomitant]
  11. GAVISCON (GAVISCON) [Concomitant]
  12. NEUPOGEN (FILGRASTIM) [Concomitant]
  13. MAXIPIME (CEFEPIME HYDROCHLORIDE) [Concomitant]
  14. PACLITAXEL )PACLITAXEL) [Concomitant]
  15. CARBOPLATIN (CARBOPLATIN) [Concomitant]
  16. SLOW K (POTASSIUM CHLORIDE) [Concomitant]
  17. DUROGESIC (FENTANYL) [Concomitant]
  18. LAXETTE SOLUTION (LACTULOSE) [Concomitant]
  19. MITIL (PROCHLORPERAZINE MALEATE) [Concomitant]
  20. GRANISETRON (GRANISETRON) [Concomitant]
  21. R-LOC (RANITIDINE) [Concomitant]

REACTIONS (5)
  - International normalised ratio increased [None]
  - Deep vein thrombosis [None]
  - Ascites [None]
  - Febrile neutropenia [None]
  - Anaemia [None]
